FAERS Safety Report 4903719-9 (Version None)
Quarter: 2006Q1

REPORT INFORMATION
  Report Type: 
  Country: None (occurrence: None)
  Receive Date: 20060202
  Receipt Date: 20060125
  Transmission Date: 20060701
  Serious: Yes (Congenital Anomaly)
  Sender: FDA-Public Use
  Company Number: 2005088530

PATIENT
  Sex: Female

DRUGS (3)
  1. ZOLOFT [Suspect]
     Indication: DEPRESSION
     Dosage: 100 MG (50 MG, 2 IN 1 D)
  2. MINOCYCLINE HCL [Concomitant]
  3. AMOXICILLIN TRIHYDRATE [Concomitant]

REACTIONS (2)
  - CONGENITAL FOOT MALFORMATION [None]
  - DRUG EXPOSURE DURING PREGNANCY [None]
